FAERS Safety Report 24608098 (Version 1)
Quarter: 2024Q4

REPORT INFORMATION
  Report Type: Spontaneous
  Country: US (occurrence: None)
  Receive Date: 20241111
  Receipt Date: 20241111
  Transmission Date: 20250115
  Serious: Yes (Other)
  Sender: Public
  Company Number: None

PATIENT
  Age: 57 Year
  Sex: Male
  Weight: 76.5 kg

DRUGS (11)
  1. REPATHA [Suspect]
     Active Substance: EVOLOCUMAB
     Indication: Type IIa hyperlipidaemia
     Dates: start: 20240814, end: 20241110
  2. METOPROLOL TARTRATE [Concomitant]
     Active Substance: METOPROLOL TARTRATE
  3. LISINOPRIL [Concomitant]
     Active Substance: LISINOPRIL
  4. MITIGARE [Concomitant]
     Active Substance: COLCHICINE
  5. PRASUGREL [Concomitant]
     Active Substance: PRASUGREL
  6. VITAMIN C [Concomitant]
     Active Substance: ASCORBIC ACID
  7. D [Concomitant]
  8. B12 [Concomitant]
  9. MAGNESIUM GLYCINATE [Concomitant]
     Active Substance: MAGNESIUM GLYCINATE
  10. COENZYME Q10 [Concomitant]
     Active Substance: DIETARY SUPPLEMENT\UBIDECARENONE
  11. LOW DOSE ASPIRIN [Concomitant]
     Active Substance: ASPIRIN

REACTIONS (5)
  - Palpitations [None]
  - Chest pain [None]
  - Fatigue [None]
  - Oropharyngeal pain [None]
  - Therapy cessation [None]

NARRATIVE: CASE EVENT DATE: 20241110
